FAERS Safety Report 4459270-6 (Version None)
Quarter: 2004Q3

REPORT INFORMATION
  Report Type: 
  Country: None (occurrence: None)
  Receive Date: 20040927
  Receipt Date: 20040915
  Transmission Date: 20050211
  Serious: Yes (Hospitalization)
  Sender: FDA-Public Use
  Company Number: IT-AMGEN-UK091129

PATIENT
  Sex: Female
  Weight: 71 kg

DRUGS (10)
  1. ARANESP [Suspect]
     Indication: RENAL FAILURE CHRONIC
     Dates: start: 20040218
  2. RENAGEL [Concomitant]
     Route: 048
  3. LEVOTHYROXINE SODIUM [Concomitant]
     Route: 048
  4. AUGMENTIN [Concomitant]
     Route: 048
     Dates: start: 20031001
  5. AMIODARONE [Concomitant]
     Dates: start: 20040221
  6. ISOPTIN [Concomitant]
     Dates: start: 20040213
  7. ISOSORBIDE MONONITRATE [Concomitant]
     Dates: start: 20040216
  8. TRAMADOL HYDROCHLORIDE [Concomitant]
     Dates: start: 20040216
  9. SODIUM FERRIC GLUCONATE COMPLEX [Concomitant]
     Dates: start: 20040319
  10. KAYEXALATE [Concomitant]

REACTIONS (5)
  - ANAEMIA [None]
  - ATRIAL FIBRILLATION [None]
  - CHEST PAIN [None]
  - HYPERPHOSPHATAEMIA [None]
  - HYPOTHYROIDISM [None]
